FAERS Safety Report 24892688 (Version 1)
Quarter: 2025Q1

REPORT INFORMATION
  Report Type: Spontaneous
  Country: KR (occurrence: KR)
  Receive Date: 20250128
  Receipt Date: 20250128
  Transmission Date: 20250409
  Serious: Yes (Other)
  Sender: ROCHE
  Company Number: KR-ROCHE-10000182991

PATIENT
  Age: 65 Year
  Sex: Male

DRUGS (5)
  1. ATEZOLIZUMAB [Suspect]
     Active Substance: ATEZOLIZUMAB
     Indication: Small cell lung cancer extensive stage
     Route: 065
  2. TARLATAMAB [Concomitant]
     Active Substance: TARLATAMAB
     Indication: Small cell lung cancer extensive stage
     Route: 040
  3. ETOPOSIDE [Concomitant]
     Active Substance: ETOPOSIDE
  4. CARBOPLATIN [Concomitant]
     Active Substance: CARBOPLATIN
  5. IRINOTECAN [Concomitant]
     Active Substance: IRINOTECAN

REACTIONS (1)
  - Disease progression [Unknown]
